FAERS Safety Report 10717684 (Version 1)
Quarter: 2015Q1

REPORT INFORMATION
  Report Type: Report from Study
  Country: NL (occurrence: NL)
  Receive Date: 20150116
  Receipt Date: 20150116
  Transmission Date: 20150721
  Serious: No
  Sender: FDA-Public Use
  Company Number: NL-SUCAMPO AG-SPI201500015

PATIENT
  Age: 16 Year
  Sex: Female
  Weight: 51.5 kg

DRUGS (6)
  1. NAPROXEN. [Concomitant]
     Active Substance: NAPROXEN
     Indication: ABDOMINAL PAIN
     Dosage: 220 MG, QD
     Route: 048
     Dates: start: 2012
  2. LUBIPROSTONE [Suspect]
     Active Substance: LUBIPROSTONE
     Indication: CONSTIPATION
     Dosage: 24 MCG, BID
     Route: 048
     Dates: start: 20141203, end: 20141206
  3. ONDANSETRON [Concomitant]
     Active Substance: ONDANSETRON
     Indication: NAUSEA
     Dosage: 4 MG, PRN
     Route: 048
     Dates: start: 201310, end: 20141119
  4. UNKNOWN [Concomitant]
     Active Substance: UNSPECIFIED INGREDIENT
     Indication: PROPHYLAXIS
     Dosage: 40 MG, ONE DOSE A DAY
     Route: 048
     Dates: start: 201205
  5. HERBAL NOS [Concomitant]
     Active Substance: HERBALS
     Indication: NAUSEA
     Dosage: 20 DROPS, ONCE A WEEK
     Route: 048
     Dates: start: 201409
  6. FORLAX [Concomitant]
     Active Substance: POLYETHYLENE GLYCOL 4000
     Indication: CONSTIPATION
     Dosage: 30 GRAMS, ONE DOSE A DAY
     Route: 048
     Dates: start: 1998, end: 20141119

REACTIONS (5)
  - Chest discomfort [Recovering/Resolving]
  - Eructation [None]
  - Nausea [None]
  - Malaise [None]
  - Dizziness [None]

NARRATIVE: CASE EVENT DATE: 20141203
